FAERS Safety Report 10286532 (Version 1)
Quarter: 2014Q3

REPORT INFORMATION
  Report Type: Spontaneous
  Country: GB (occurrence: None)
  Receive Date: 20140707
  Receipt Date: 20140707
  Transmission Date: 20150326
  Serious: Yes (Death, Life-Threatening, Hospitalization)
  Sender: FDA-Public Use
  Company Number: GB2014K2164SPO

PATIENT
  Age: 77 Year
  Sex: Female
  Weight: 89 kg

DRUGS (16)
  1. RAMIPRIL WORLD (RAMIPRIL) UNKNOWN [Suspect]
     Active Substance: RAMIPRIL
     Indication: MYOCARDIAL INFARCTION
     Route: 048
     Dates: start: 20130930, end: 20131125
  2. ATORVASTATIN (ATORVASTATIN) UNKNOWN [Concomitant]
     Active Substance: ATORVASTATIN
  3. CLOPIDOGREL (CLOPIDOGREL) UNKNOWN [Concomitant]
     Active Substance: CLOPIDOGREL BISULFATE
  4. TICAGRELOR [Suspect]
     Active Substance: TICAGRELOR
     Indication: THROMBOSIS IN DEVICE
     Route: 048
     Dates: start: 20131005, end: 20131125
  5. ASPIRIN (ASPIRIN) UNKNOWN [Concomitant]
  6. MOMETASONE (MOMETASONE) UNKNOWN [Concomitant]
  7. FERROUS FUMARATE [Suspect]
     Active Substance: FERROUS FUMARATE
     Indication: IRON DEFICIENCY
     Route: 048
     Dates: start: 20131025, end: 20131125
  8. LACTULOSE (LACTULOSE) UNKNOWN [Concomitant]
  9. PARACETAMOL (PARACETAMOL) UNKNOWN [Concomitant]
  10. SALBUTAMOL (SALBUTAMOL) UNKNOWN [Concomitant]
  11. SERETIDE (FLUTICASONE PROPIONATE MICRONISED, SALBUTAMOL XIANOFOATE MICRONISED) UNKNOWN [Concomitant]
  12. LANSOPRAZOLE GENERIC (LANSOPRAZOLE) UNKNOWN [Suspect]
     Active Substance: LANSOPRAZOLE
     Indication: DYSPEPSIA
     Route: 048
     Dates: start: 20131025, end: 20131125
  13. IVABRADINE WORLD [Suspect]
     Active Substance: IVABRADINE
     Indication: MYOCARDIAL INFARCTION
     Route: 048
     Dates: start: 20130930, end: 20131125
  14. SENNA (SENNA) UNKNOWN [Concomitant]
  15. GLYCERIN (GLYCEROL) UNKNOWN [Concomitant]
  16. GTN (GLYCERYL TRINITRATE) UNKNOWN [Concomitant]

REACTIONS (3)
  - Cardiac disorder [None]
  - Agranulocytosis [None]
  - Sudden death [None]

NARRATIVE: CASE EVENT DATE: 20131125
